FAERS Safety Report 25933213 (Version 1)
Quarter: 2025Q4

REPORT INFORMATION
  Report Type: Spontaneous
  Country: US (occurrence: US)
  Receive Date: 20251017
  Receipt Date: 20251017
  Transmission Date: 20260118
  Serious: Yes (Other)
  Sender: DERMARITE INDUSTRIES
  Company Number: US-DERMARITE INDUSTRIES, LLC.-2025-DER-US000067

PATIENT

DRUGS (2)
  1. DERMAFUNGAL [Suspect]
     Active Substance: MICONAZOLE NITRATE
     Indication: Skin irritation
     Dosage: UNKNOWN
     Route: 061
     Dates: start: 2023
  2. DERMAFUNGAL [Suspect]
     Active Substance: MICONAZOLE NITRATE
     Dosage: UNK, BID
     Route: 061
     Dates: start: 202507

REACTIONS (5)
  - Pneumonia [Recovering/Resolving]
  - Skin irritation [Recovering/Resolving]
  - Condition aggravated [Recovering/Resolving]
  - Erythema [Unknown]
  - Pruritus [Unknown]

NARRATIVE: CASE EVENT DATE: 20250101
